FAERS Safety Report 5485318-6 (Version None)
Quarter: 2007Q4

REPORT INFORMATION
  Report Type: 
  Country: None (occurrence: None)
  Receive Date: 20071015
  Receipt Date: 20071005
  Transmission Date: 20080405
  Serious: Yes (Other)
  Sender: FDA-Public Use
  Company Number: US-PURDUE-USA_2007_0029207

PATIENT
  Age: 75 Year
  Sex: Male

DRUGS (2)
  1. OXYCONTIN [Suspect]
     Indication: PAIN
     Dosage: 10 MG, SEE TEXT
     Route: 048
     Dates: start: 20010401, end: 20010501
  2. INSULIN [Concomitant]
     Indication: DIABETES MELLITUS
     Dosage: UNK, UNK

REACTIONS (2)
  - DEAFNESS [None]
  - DRUG DEPENDENCE [None]
